FAERS Safety Report 4462946-8 (Version None)
Quarter: 2004Q3

REPORT INFORMATION
  Report Type: 
  Country: None (occurrence: None)
  Receive Date: 20040927
  Receipt Date: 20040910
  Transmission Date: 20050211
  Serious: Yes (Death)
  Sender: FDA-Public Use
  Company Number: JP-2004-031877

PATIENT
  Age: 38 Year
  Sex: Male

DRUGS (1)
  1. BETAFERON(INTERFERON BETA-1B) INJECTION, 250 MICROG [Suspect]
     Indication: MULTIPLE SCLEROSIS

REACTIONS (1)
  - PULMONARY EMBOLISM [None]
